FAERS Safety Report 7972314-X (Version None)
Quarter: 2011Q4

REPORT INFORMATION
  Report Type: 
  Country: None (occurrence: None)
  Receive Date: 20111213
  Receipt Date: 20111207
  Transmission Date: 20120403
  Serious: No
  Sender: FDA-Public Use
  Company Number: US-BIOGENIDEC-2011BI043612

PATIENT
  Sex: Male

DRUGS (1)
  1. TYSABRI [Suspect]
     Indication: MULTIPLE SCLEROSIS
     Route: 042
     Dates: start: 20101213

REACTIONS (10)
  - GAIT DISTURBANCE [None]
  - FATIGUE [None]
  - OEDEMA PERIPHERAL [None]
  - FEELING ABNORMAL [None]
  - FALL [None]
  - ARTHRITIS [None]
  - LIMB INJURY [None]
  - PAIN IN EXTREMITY [None]
  - INSOMNIA [None]
  - MOBILITY DECREASED [None]
